FAERS Safety Report 25875298 (Version 1)
Quarter: 2025Q4

REPORT INFORMATION
  Report Type: Spontaneous
  Country: US (occurrence: US)
  Receive Date: 20251003
  Receipt Date: 20251003
  Transmission Date: 20260118
  Serious: No
  Sender: ROCHE
  Company Number: US-ROCHE-10000397575

PATIENT
  Age: 33 Year

DRUGS (3)
  1. OCREVUS [Suspect]
     Active Substance: OCRELIZUMAB
     Indication: Multiple sclerosis
     Route: 050
  2. CODEINE [Concomitant]
     Active Substance: CODEINE
  3. DELTASONE [Concomitant]
     Active Substance: PREDNISONE

REACTIONS (3)
  - Asthma [Unknown]
  - Fatigue [Unknown]
  - Illness [Unknown]
